FAERS Safety Report 25255811 (Version 1)
Quarter: 2025Q2

REPORT INFORMATION
  Report Type: Spontaneous
  Country: US (occurrence: US)
  Receive Date: 20250430
  Receipt Date: 20250430
  Transmission Date: 20250717
  Serious: Yes (Hospitalization, Other)
  Sender: OXFORD PHARMACEUTICALS, LLC
  Company Number: US-Oxford Pharmaceuticals, LLC-2175877

PATIENT
  Age: 72 Year
  Sex: Female
  Weight: 158 kg

DRUGS (4)
  1. BACLOFEN [Suspect]
     Active Substance: BACLOFEN
     Indication: Product used for unknown indication
  2. TRAZODONE HYDROCHLORIDE [Suspect]
     Active Substance: TRAZODONE HYDROCHLORIDE
  3. ZOLPIDEM [Suspect]
     Active Substance: ZOLPIDEM TARTRATE
  4. GABAPENTIN [Suspect]
     Active Substance: GABAPENTIN

REACTIONS (11)
  - Loss of consciousness [Unknown]
  - Intentional overdose [Unknown]
  - Hypotension [Unknown]
  - Bradycardia [Unknown]
  - Vomiting [Unknown]
  - Bruxism [Unknown]
  - Toxicity to various agents [Unknown]
  - Atrial fibrillation [Unknown]
  - Electrocardiogram QRS complex prolonged [Unknown]
  - Hypoxia [Unknown]
  - Agonal respiration [Unknown]
